FAERS Safety Report 18559450 (Version 1)
Quarter: 2020Q4

REPORT INFORMATION
  Report Type: Spontaneous
  Country: HR (occurrence: HR)
  Receive Date: 20201130
  Receipt Date: 20201130
  Transmission Date: 20210114
  Serious: Yes (Hospitalization)
  Sender: FDA-Public Use
  Company Number: HR-TEVA-2020-HR-1853159

PATIENT
  Sex: Male
  Weight: 112 kg

DRUGS (37)
  1. EPLERENONE. [Suspect]
     Active Substance: EPLERENONE
     Dosage: 25 MILLIGRAM
     Route: 065
     Dates: start: 2016
  2. FUROSEMIDE. [Suspect]
     Active Substance: FUROSEMIDE
     Dosage: 40 MG, BID, 80 MG
     Route: 065
     Dates: start: 2016
  3. FUROSEMIDE. [Suspect]
     Active Substance: FUROSEMIDE
     Dosage: 40 MG, PRN
     Route: 065
     Dates: start: 202009
  4. ENTRESTO [Suspect]
     Active Substance: SACUBITRIL\VALSARTAN
     Dosage: 200 MG, BID (97/103 MG), 400 MG
     Route: 065
     Dates: start: 2020
  5. AMIODARONE [Suspect]
     Active Substance: AMIODARONE
     Dosage: 1 DF, UNKNOWN
     Dates: start: 2018
  6. ROSUVASTATIN. [Suspect]
     Active Substance: ROSUVASTATIN
     Dosage: 1 DF
     Route: 065
     Dates: start: 2019
  7. AMIODARONE [Suspect]
     Active Substance: AMIODARONE
     Dosage: 1 DF
     Dates: start: 202009
  8. AMIODARONE [Suspect]
     Active Substance: AMIODARONE
     Dosage: 1 DF, UNKNOWN
     Route: 065
     Dates: start: 2019
  9. EPLERENONE. [Suspect]
     Active Substance: EPLERENONE
     Dosage: 50 MILLIGRAM
     Route: 065
     Dates: start: 2020
  10. EPLERENONE. [Suspect]
     Active Substance: EPLERENONE
     Dosage: 25 MILLIGRAM, (2015-2016)
     Route: 065
     Dates: start: 2015, end: 2016
  11. FUROSEMIDE. [Suspect]
     Active Substance: FUROSEMIDE
     Dosage: 40 MG, BID, 80 MG
     Route: 065
     Dates: start: 2019
  12. FUROSEMIDE. [Suspect]
     Active Substance: FUROSEMIDE
     Dosage: 40 MILLIGRAM DAILY;  (2015-2016)
     Route: 065
  13. FUROSEMIDE. [Suspect]
     Active Substance: FUROSEMIDE
     Dosage: 40 MG, PRN
     Route: 065
     Dates: start: 2020
  14. AMIODARONE [Suspect]
     Active Substance: AMIODARONE
     Dosage: 1 DF, UNKNOWN
     Dates: start: 2020
  15. ROSUVASTATIN. [Suspect]
     Active Substance: ROSUVASTATIN
     Dosage: 1 DF
     Route: 065
     Dates: start: 2018
  16. ELIQUIS [Suspect]
     Active Substance: APIXABAN
     Dosage: 5 MILLIGRAM, BID, 10 MG
     Route: 065
     Dates: start: 202009
  17. AMIODARONE [Suspect]
     Active Substance: AMIODARONE
     Dosage: 1 DOSAGE FORMS DAILY; (IN THE MORNING)
     Dates: start: 2016
  18. BISOPROLOL [Suspect]
     Active Substance: BISOPROLOL
     Dosage: 5 MG, BID, 10 MG
     Route: 065
     Dates: start: 2016
  19. BISOPROLOL [Suspect]
     Active Substance: BISOPROLOL
     Dosage: 5 MG, BID, 10 MG
     Route: 065
     Dates: start: 2020
  20. BISOPROLOL [Suspect]
     Active Substance: BISOPROLOL
     Dosage: 5 MG, BID, 10 MG
     Route: 065
     Dates: start: 2019
  21. BISOPROLOL [Suspect]
     Active Substance: BISOPROLOL
     Dosage: 5 MG, BID, 10 MG
     Route: 065
     Dates: start: 202009
  22. EPLERENONE. [Suspect]
     Active Substance: EPLERENONE
     Dosage: 50 MILLIGRAM
     Route: 065
     Dates: start: 2018
  23. ROSUVASTATIN. [Suspect]
     Active Substance: ROSUVASTATIN
     Dosage: 1 DF
     Route: 065
     Dates: start: 2020
  24. ELIQUIS [Suspect]
     Active Substance: APIXABAN
     Dosage: 5 MILLIGRAM, BID, 10 MG
     Route: 065
     Dates: start: 2019
  25. ELIQUIS [Suspect]
     Active Substance: APIXABAN
     Dosage: 5 MILLIGRAM, BID, 10 MG
     Route: 065
     Dates: start: 2020
  26. ENTRESTO [Suspect]
     Active Substance: SACUBITRIL\VALSARTAN
     Dosage: 200 MG, BID (97/103 MG), 400 MG
     Route: 065
     Dates: start: 2019
  27. EPLERENONE. [Suspect]
     Active Substance: EPLERENONE
     Dosage: 50 MILLIGRAM
     Route: 065
     Dates: start: 202009
  28. EPLERENONE. [Suspect]
     Active Substance: EPLERENONE
     Dosage: 50 MILLIGRAM, UNKNOWN
     Route: 065
     Dates: start: 2019
  29. ROSUVASTATIN. [Suspect]
     Active Substance: ROSUVASTATIN
     Dosage: 1 DF
     Route: 065
     Dates: start: 202009
  30. ROSUVASTATIN. [Suspect]
     Active Substance: ROSUVASTATIN
     Dosage: 1 DOSAGE FORMS DAILY;  (IN THE EVENING)
     Route: 065
     Dates: start: 2016
  31. FUROSEMIDE. [Suspect]
     Active Substance: FUROSEMIDE
     Dosage: 500 MG, BID (QUARTER OF A TABLET), 1000 MG
     Route: 065
     Dates: start: 2018
  32. ENTRESTO [Suspect]
     Active Substance: SACUBITRIL\VALSARTAN
     Dosage: 100 MG, BID (49/51 MG), 200 MG
     Route: 065
     Dates: start: 2018
  33. BISOPROLOL [Suspect]
     Active Substance: BISOPROLOL
     Dosage: 5 MG, BID (2015-2016), 10 MG
     Route: 065
     Dates: start: 2015, end: 2016
  34. ROSUVASTATIN. [Suspect]
     Active Substance: ROSUVASTATIN
     Dosage: 1 DOSAGE FORMS DAILY; (IN THE EVENING) (2015-2016)
     Route: 065
     Dates: start: 2015, end: 2016
  35. ELIQUIS [Suspect]
     Active Substance: APIXABAN
     Dosage: 5 MILLIGRAM, BID, 10 MG
     Route: 065
     Dates: start: 2016
  36. ELIQUIS [Suspect]
     Active Substance: APIXABAN
     Dosage: 5 MILLIGRAM, BID, 10 MG
     Route: 065
     Dates: start: 2018
  37. ENTRESTO [Suspect]
     Active Substance: SACUBITRIL\VALSARTAN
     Dosage: 200 MG, BID (97/103 MG), 400 MG
     Route: 065
     Dates: start: 202009

REACTIONS (4)
  - Chest discomfort [Unknown]
  - N-terminal prohormone brain natriuretic peptide increased [Unknown]
  - Atrial tachycardia [Recovered/Resolved]
  - Weight decreased [Unknown]

NARRATIVE: CASE EVENT DATE: 2019
